FAERS Safety Report 22794148 (Version 3)
Quarter: 2024Q2

REPORT INFORMATION
  Report Type: Report from Study
  Country: BE (occurrence: BE)
  Receive Date: 20230807
  Receipt Date: 20240516
  Transmission Date: 20240715
  Serious: Yes (Other)
  Sender: FDA-Public Use
  Company Number: BE-Merck Healthcare KGaA-2023459087

PATIENT
  Age: 76 Year
  Sex: Female
  Weight: 57 kg

DRUGS (4)
  1. TEPOTINIB [Suspect]
     Active Substance: TEPOTINIB
     Indication: Non-small cell lung cancer
     Dates: start: 20221122, end: 20230403
  2. INDAPAMIDE [Concomitant]
     Active Substance: INDAPAMIDE
     Indication: Product used for unknown indication
  3. TINZAPARIN SODIUM [Concomitant]
     Active Substance: TINZAPARIN SODIUM
     Indication: Product used for unknown indication
  4. ESOMEPRAZOLE [Concomitant]
     Active Substance: ESOMEPRAZOLE
     Indication: Product used for unknown indication
     Route: 048

REACTIONS (1)
  - Hepatitis [Recovered/Resolved]

NARRATIVE: CASE EVENT DATE: 20230403
